FAERS Safety Report 16297959 (Version 1)
Quarter: 2019Q2

REPORT INFORMATION
  Report Type: Spontaneous
  Country: US (occurrence: US)
  Receive Date: 20190510
  Receipt Date: 20190510
  Transmission Date: 20190711
  Serious: No
  Sender: FDA-Public Use
  Company Number: US-ALKERMES INC.-ALK-2019-001536

PATIENT
  Age: 51 Year
  Sex: Male

DRUGS (2)
  1. NALTREXONE [Concomitant]
     Active Substance: NALTREXONE
     Indication: PRODUCT USED FOR UNKNOWN INDICATION
     Route: 048
  2. VIVITROL [Suspect]
     Active Substance: NALTREXONE
     Indication: ALCOHOLISM
     Dosage: 380 MG, QMO
     Route: 030
     Dates: start: 20190115

REACTIONS (4)
  - Blood pressure increased [Not Recovered/Not Resolved]
  - Toothache [Not Recovered/Not Resolved]
  - Tooth abscess [Not Recovered/Not Resolved]
  - Gingival swelling [Not Recovered/Not Resolved]

NARRATIVE: CASE EVENT DATE: 2019
